FAERS Safety Report 9064711 (Version 1)
Quarter: 2013Q1

REPORT INFORMATION
  Report Type: Spontaneous
  Country: US (occurrence: US)
  Receive Date: 20130128
  Receipt Date: 20130128
  Transmission Date: 20140127
  Serious: Yes (Hospitalization)
  Sender: FDA-Public Use
  Company Number: US-NOVOPROD-369449

PATIENT
  Age: 55 Year
  Sex: Male
  Weight: 63.5 kg

DRUGS (1)
  1. NOVOLIN N [Suspect]
     Indication: TYPE 2 DIABETES MELLITUS
     Dosage: 8-10 UNITS DAILY
     Route: 058

REACTIONS (2)
  - Road traffic accident [Recovered/Resolved]
  - Hypoglycaemic unconsciousness [Recovered/Resolved]
